FAERS Safety Report 10215691 (Version 1)
Quarter: 2014Q2

REPORT INFORMATION
  Report Type: Spontaneous
  Country: CA (occurrence: None)
  Receive Date: 20140602
  Receipt Date: 20140602
  Transmission Date: 20141212
  Serious: Yes (Hospitalization)
  Sender: FDA-Public Use
  Company Number: SYM-2014-21403

PATIENT
  Sex: 0

DRUGS (2)
  1. FLUOROURACIL [Suspect]
     Indication: MALIGNANT NEOPLASM OF UNKNOWN PRIMARY SITE
  2. THERAPEUTIC RADIOPHARMACEUTICALS (THERAPEUTIC RADIOPHARMACEUTICALS) [Suspect]
     Indication: MALIGNANT NEOPLASM OF UNKNOWN PRIMARY SITE

REACTIONS (1)
  - Deep vein thrombosis [None]
